FAERS Safety Report 6100335-0 (Version None)
Quarter: 2009Q1

REPORT INFORMATION
  Report Type: 
  Country: None (occurrence: None)
  Receive Date: 20090303
  Receipt Date: 20090224
  Transmission Date: 20090719
  Serious: Yes (Other)
  Sender: FDA-Public Use
  Company Number: JP-MERCK-0902USA04708

PATIENT
  Age: 64 Year
  Sex: Male

DRUGS (3)
  1. ZETIA [Suspect]
     Indication: HYPERCHOLESTEROLAEMIA
     Route: 048
     Dates: start: 20071211
  2. NORVASC [Concomitant]
     Route: 065
     Dates: start: 20071211, end: 20090202
  3. NORVASC [Concomitant]
     Route: 065
     Dates: start: 20090201

REACTIONS (1)
  - HEPATIC FUNCTION ABNORMAL [None]
